FAERS Safety Report 5813712-X (Version None)
Quarter: 2008Q3

REPORT INFORMATION
  Report Type: 
  Country: None (occurrence: None)
  Receive Date: 20080711
  Receipt Date: 20080627
  Transmission Date: 20090109
  Serious: Yes (Hospitalization)
  Sender: FDA-Public Use
  Company Number: 20080627VANCO0707

PATIENT
  Age: 61 Year
  Sex: Male

DRUGS (11)
  1. VANCOMYCIN HCL [Suspect]
     Indication: CLOSTRIDIAL INFECTION
     Dosage: ORAL
     Route: 048
     Dates: start: 20080401
  2. SIMVASTATIN (SIMVATATIN) [Concomitant]
  3. OMEPRAZOLE [Concomitant]
  4. FOLIC ACID [Concomitant]
  5. METOPROLOL TARTRATE [Concomitant]
  6. IRON (IRON) [Concomitant]
  7. FUROSEMIDE [Concomitant]
  8. AMIODARONE HCL [Concomitant]
  9. IPRATROPIUM BROMIDE [Concomitant]
  10. WAFARIN (WARFARIN) [Concomitant]
  11. ASPIRIN [Concomitant]

REACTIONS (1)
  - ARTHRITIS [None]
